FAERS Safety Report 17053622 (Version 3)
Quarter: 2021Q2

REPORT INFORMATION
  Report Type: Report from Study
  Country: JP (occurrence: JP)
  Receive Date: 20191120
  Receipt Date: 20210405
  Transmission Date: 20210716
  Serious: Yes (Other)
  Sender: FDA-Public Use
  Company Number: JP-INCYTE CORPORATION-2019IN011601

PATIENT

DRUGS (8)
  1. FLUCONAZOLE. [Concomitant]
     Active Substance: FLUCONAZOLE
     Indication: BONE MARROW FAILURE
     Dosage: 200 MG, UNK
     Route: 048
     Dates: start: 20161122, end: 20161213
  2. VFEND [Concomitant]
     Active Substance: VORICONAZOLE
     Indication: BONE MARROW FAILURE
     Dosage: 600 MG, UNK
     Route: 048
     Dates: start: 20161214, end: 20161214
  3. PRODIF [Concomitant]
     Active Substance: FOSFLUCONAZOLE
     Indication: BONE MARROW FAILURE
     Dosage: 400 MG, UNK
     Route: 065
     Dates: start: 20161118, end: 20161121
  4. JAKAVI [Suspect]
     Active Substance: RUXOLITINIB
     Indication: PRIMARY MYELOFIBROSIS
     Dosage: 5 MG, BID
     Route: 048
     Dates: start: 20160513, end: 20161115
  5. JAKAVI [Suspect]
     Active Substance: RUXOLITINIB
     Dosage: 5 MG, QD
     Route: 048
     Dates: start: 20161116, end: 20170111
  6. RED BLOOD CELLS, CONCENTRATED [Concomitant]
     Active Substance: HUMAN RED BLOOD CELL
     Indication: PRIMARY MYELOFIBROSIS
     Dosage: 2 U, UNK
     Route: 041
     Dates: start: 20160708, end: 20170110
  7. VFEND [Concomitant]
     Active Substance: VORICONAZOLE
     Dosage: 400 MG, UNK
     Route: 048
     Dates: start: 20161215
  8. RED BLOOD CELLS, CONCENTRATED [Concomitant]
     Active Substance: HUMAN RED BLOOD CELL
     Indication: ANAEMIA

REACTIONS (1)
  - Primary myelofibrosis [Not Recovered/Not Resolved]

NARRATIVE: CASE EVENT DATE: 20170523
